FAERS Safety Report 7053499-9 (Version None)
Quarter: 2010Q4

REPORT INFORMATION
  Report Type: 
  Country: None (occurrence: None)
  Receive Date: 20101020
  Receipt Date: 20101011
  Transmission Date: 20110411
  Serious: Yes (Death, Hospitalization, Other)
  Sender: FDA-Public Use
  Company Number: DE-CELGENEUS-062-50794-10101385

PATIENT
  Age: 87 Year
  Sex: Male

DRUGS (2)
  1. VIDAZA [Suspect]
     Route: 058
     Dates: start: 20070529, end: 20070902
  2. VALPROIC ACID [Suspect]
     Route: 065
     Dates: end: 20070518

REACTIONS (10)
  - ANAEMIA [None]
  - DISEASE PROGRESSION [None]
  - FATIGUE [None]
  - FUNGAL SEPSIS [None]
  - GENERAL PHYSICAL CONDITION ABNORMAL [None]
  - NEUTROPENIC INFECTION [None]
  - PNEUMONIA [None]
  - SUBDURAL HAEMATOMA [None]
  - SUICIDAL BEHAVIOUR [None]
  - THROMBOCYTOPENIA [None]
